FAERS Safety Report 21357438 (Version 1)
Quarter: 2022Q3

REPORT INFORMATION
  Report Type: Spontaneous
  Country: US (occurrence: US)
  Receive Date: 20220921
  Receipt Date: 20220921
  Transmission Date: 20221026
  Serious: Yes (Hospitalization, Other)
  Sender: FDA-Public Use
  Company Number: US-BRISTOL-MYERS SQUIBB COMPANY-2022-108521

PATIENT
  Age: 75 Year
  Sex: Female

DRUGS (3)
  1. INREBIC [Suspect]
     Active Substance: FEDRATINIB HYDROCHLORIDE
     Indication: Product used for unknown indication
     Route: 048
  2. JAKAFI [Suspect]
     Active Substance: RUXOLITINIB
     Indication: Product used for unknown indication
     Route: 065
  3. PACRITINIB [Suspect]
     Active Substance: PACRITINIB
     Indication: Product used for unknown indication
     Route: 065

REACTIONS (6)
  - Pneumonia [Unknown]
  - Loss of personal independence in daily activities [Recovering/Resolving]
  - Dysgeusia [Unknown]
  - Dyspepsia [Unknown]
  - Pain [Unknown]
  - Blood disorder [Unknown]

NARRATIVE: CASE EVENT DATE: 20220801
